FAERS Safety Report 24846518 (Version 1)
Quarter: 2025Q1

REPORT INFORMATION
  Report Type: Spontaneous
  Country: JP (occurrence: JP)
  Receive Date: 20250115
  Receipt Date: 20250115
  Transmission Date: 20250409
  Serious: Yes (Death)
  Sender: MERCK
  Company Number: JP-MSD-M2025-00635

PATIENT
  Sex: Female

DRUGS (3)
  1. KEYTRUDA [Suspect]
     Active Substance: PEMBROLIZUMAB
     Indication: Cervix carcinoma
     Dosage: 200 MILLIGRAM, Q3W
     Route: 041
     Dates: start: 202410, end: 202410
  2. PACLITAXEL [Concomitant]
     Active Substance: PACLITAXEL
     Indication: Cervix carcinoma
     Dosage: 175 MILLIGRAM, Q3W
     Route: 041
     Dates: start: 202410, end: 202410
  3. CARBOPLATIN [Concomitant]
     Active Substance: CARBOPLATIN
     Indication: Cervix carcinoma
     Dosage: AUC5, Q3W
     Route: 041
     Dates: start: 202410, end: 202410

REACTIONS (2)
  - Platelet count decreased [Fatal]
  - Fistula [Fatal]

NARRATIVE: CASE EVENT DATE: 20241201
